FAERS Safety Report 17324245 (Version 1)
Quarter: 2020Q1

REPORT INFORMATION
  Report Type: Spontaneous
  Country: PT (occurrence: PT)
  Receive Date: 20200127
  Receipt Date: 20200127
  Transmission Date: 20200409
  Serious: Yes (Other)
  Sender: FDA-Public Use
  Company Number: PT-ACCORD-170652

PATIENT
  Age: 45 Year
  Sex: Male

DRUGS (6)
  1. AMLODIPINE [Suspect]
     Active Substance: AMLODIPINE BESYLATE
     Indication: PRODUCT USED FOR UNKNOWN INDICATION
     Route: 065
  2. AZILSARTAN [Concomitant]
     Active Substance: AZILSARTAN KAMEDOXOMIL
  3. GLICLAZIDE [Suspect]
     Active Substance: GLICLAZIDE
     Indication: PRODUCT USED FOR UNKNOWN INDICATION
     Dosage: UNK
     Route: 065
  4. CHLORTALIDONE [Concomitant]
     Active Substance: CHLORTHALIDONE
  5. FENOFIBRATE. [Concomitant]
     Active Substance: FENOFIBRATE
  6. METFORMIN [Suspect]
     Active Substance: METFORMIN HYDROCHLORIDE
     Indication: PRODUCT USED FOR UNKNOWN INDICATION
     Dosage: UNK
     Route: 065

REACTIONS (6)
  - Fibrillary glomerulonephritis [Unknown]
  - Nephrotic syndrome [Unknown]
  - Proteinuria [Unknown]
  - Oedema [Unknown]
  - Renal impairment [Unknown]
  - Obesity [Unknown]
